FAERS Safety Report 12085470 (Version 1)
Quarter: 2016Q1

REPORT INFORMATION
  Report Type: Spontaneous
  Country: US (occurrence: US)
  Receive Date: 20160217
  Receipt Date: 20160217
  Transmission Date: 20160526
  Serious: No
  Sender: FDA-Public Use
  Company Number: US-B.I. PHARMACEUTICALS,INC./RIDGEFIELD-2016-BI-07070BP

PATIENT
  Age: 13 Year
  Sex: Male
  Weight: 62.2 kg

DRUGS (2)
  1. CATAPRES-TTS [Suspect]
     Active Substance: CLONIDINE
     Indication: AUTISM
     Dosage: 0.1429 ANZ
     Route: 065
     Dates: start: 2014
  2. RISPERIDONE. [Concomitant]
     Active Substance: RISPERIDONE
     Indication: AUTISM
     Dosage: 2 MG
     Route: 048
     Dates: start: 2010

REACTIONS (4)
  - Fatigue [Not Recovered/Not Resolved]
  - Drug administered to patient of inappropriate age [Unknown]
  - Product quality issue [Unknown]
  - Off label use [Unknown]

NARRATIVE: CASE EVENT DATE: 2014
